FAERS Safety Report 11911923 (Version 1)
Quarter: 2016Q1

REPORT INFORMATION
  Report Type: Spontaneous
  Country: CA (occurrence: CA)
  Receive Date: 20160112
  Receipt Date: 20160112
  Transmission Date: 20160526
  Serious: Yes (Death)
  Sender: FDA-Public Use
  Company Number: CA-TEVA-624447ACC

PATIENT
  Age: 42 Year
  Sex: Female

DRUGS (2)
  1. AMOXICILLIN. [Suspect]
     Active Substance: AMOXICILLIN
     Indication: RESPIRATORY TRACT INFECTION
     Dosage: FREQUENCY: ONCE
     Route: 065
  2. ACETAMINOPHEN. [Suspect]
     Active Substance: ACETAMINOPHEN
     Indication: PRODUCT USED FOR UNKNOWN INDICATION
     Dosage: FREQUENCY: ONCE
     Route: 065

REACTIONS (7)
  - Infection [Fatal]
  - Self-medication [Fatal]
  - Cardiac failure [Fatal]
  - Renal failure [Fatal]
  - Toxic epidermal necrolysis [Fatal]
  - Disorder of orbit [Fatal]
  - Hepatic failure [Fatal]
